FAERS Safety Report 7336248-6 (Version None)
Quarter: 2011Q1

REPORT INFORMATION
  Report Type: 
  Country: None (occurrence: None)
  Receive Date: 20110307
  Receipt Date: 20110221
  Transmission Date: 20110831
  Serious: Yes (Death, Hospitalization)
  Sender: FDA-Public Use
  Company Number: JP-JNJFOC-20110206337

PATIENT
  Sex: Male
  Weight: 45 kg

DRUGS (34)
  1. DOXIL [Suspect]
     Dosage: CYCLE 5
     Route: 042
  2. DOXIL [Suspect]
     Dosage: CYCLE 6
     Route: 042
  3. DOXIL [Suspect]
     Dosage: CYCLE 9
     Route: 042
  4. SULFADOXINE PYRIMETHAMINE [Concomitant]
     Indication: MYCOBACTERIUM AVIUM COMPLEX INFECTION
     Route: 048
  5. LEUCOVORIN CALCIUM [Concomitant]
     Indication: MYCOBACTERIUM AVIUM COMPLEX INFECTION
     Route: 048
  6. DOXIL [Suspect]
     Dosage: CYCLE 8
     Route: 042
  7. ZIAGEN [Concomitant]
     Indication: HIV INFECTION
     Route: 048
  8. EPZICOM [Concomitant]
     Indication: HIV INFECTION
     Route: 048
  9. GRAN [Concomitant]
     Indication: PROPHYLAXIS
     Route: 065
  10. REMINARON [Concomitant]
     Route: 065
  11. DOXIL [Suspect]
     Dosage: CYCLE 1
     Route: 042
  12. EPIVIR [Concomitant]
     Route: 048
  13. RALTEGRAVIR [Concomitant]
     Indication: HIV INFECTION
     Route: 048
  14. SULFAMETHOXAZOLE [Concomitant]
     Indication: MYCOBACTERIUM AVIUM COMPLEX INFECTION
     Route: 048
  15. GRAN [Concomitant]
     Indication: WHITE BLOOD CELL COUNT DECREASED
     Route: 065
  16. ETHAMBUTOL HYDROCHLORIDE [Concomitant]
     Indication: MYCOBACTERIUM AVIUM COMPLEX INFECTION
     Route: 048
  17. DOXIL [Suspect]
     Dosage: CYCLE 3
     Route: 042
  18. EPIVIR [Concomitant]
     Indication: HIV INFECTION
     Route: 048
  19. LOPINAVIR/RITONAVIR [Concomitant]
     Indication: HIV INFECTION
     Route: 048
  20. ALBUMIN (HUMAN) [Concomitant]
     Indication: HIV INFECTION
     Route: 042
  21. RIFABUTIN [Concomitant]
     Route: 048
  22. DOXIL [Suspect]
     Indication: KAPOSI'S SARCOMA AIDS RELATED
     Dosage: CYCLE 4
     Route: 042
  23. DOXIL [Suspect]
     Dosage: CYCLE 2
     Route: 042
  24. CLINDAMYCIN [Concomitant]
     Indication: MYCOBACTERIUM AVIUM COMPLEX INFECTION
     Route: 048
  25. FUNGUARD [Concomitant]
     Route: 042
  26. AMBISOME [Concomitant]
     Route: 042
  27. LOPINAVIR/RITONAVIR [Concomitant]
     Route: 048
  28. MEROPENEM HYDRATE [Concomitant]
     Route: 042
  29. DOXIL [Suspect]
     Dosage: CYCLE 7
     Route: 042
  30. CLARITH [Concomitant]
     Indication: MYCOBACTERIUM AVIUM COMPLEX INFECTION
     Route: 048
  31. RIFABUTIN [Concomitant]
     Indication: MYCOBACTERIUM AVIUM COMPLEX INFECTION
     Route: 048
  32. SULFAMETHOXAZOLE AND TRIMETHOPRIM [Concomitant]
     Indication: MYCOBACTERIUM AVIUM COMPLEX INFECTION
     Route: 048
  33. ATOVAQUONE [Concomitant]
     Indication: HIV INFECTION
     Route: 048
  34. CONCENTRATED RED CELLS [Concomitant]
     Indication: PROPHYLAXIS
     Route: 041

REACTIONS (5)
  - PLEURAL EFFUSION [None]
  - PANCREATITIS [None]
  - IDIOPATHIC THROMBOCYTOPENIC PURPURA [None]
  - MULTI-ORGAN FAILURE [None]
  - DISSEMINATED INTRAVASCULAR COAGULATION [None]
